FAERS Safety Report 20718135 (Version 1)
Quarter: 2022Q2

REPORT INFORMATION
  Report Type: Other
  Country: CA (occurrence: None)
  Receive Date: 20220418
  Receipt Date: 20220418
  Transmission Date: 20220720
  Serious: Yes (Hospitalization, Other)
  Sender: FDA-Public Use
  Company Number: CA-ROCHE-2800458

PATIENT
  Age: 53 Year
  Sex: Female

DRUGS (20)
  1. OCREVUS [Suspect]
     Active Substance: OCRELIZUMAB
     Indication: Relapsing-remitting multiple sclerosis
     Dosage: 300 MG AT DAY 0 AND 14, THEN 600 MG EVERY 6 MONTH
     Route: 042
     Dates: start: 20200721
  2. OCREVUS [Suspect]
     Active Substance: OCRELIZUMAB
     Indication: Multiple sclerosis
  3. GABAPENTIN [Concomitant]
     Active Substance: GABAPENTIN
  4. TOPIRAMATE [Concomitant]
     Active Substance: TOPIRAMATE
  5. BUTRANS [Concomitant]
     Active Substance: BUPRENORPHINE
  6. TRAMADOL HYDROCHLORIDE [Concomitant]
     Active Substance: TRAMADOL HYDROCHLORIDE
  7. NABIXIMOLS [Concomitant]
     Active Substance: NABIXIMOLS
  8. BOTOX [Concomitant]
     Active Substance: ONABOTULINUMTOXINA
  9. RIZATRIPTAN [Concomitant]
     Active Substance: RIZATRIPTAN
  10. PANTOPRAZOLE [Concomitant]
     Active Substance: PANTOPRAZOLE
  11. BUTYLSCOPOLAMINE BROMIDE [Concomitant]
     Active Substance: BUTYLSCOPOLAMINE BROMIDE
  12. LORAZEPAM [Concomitant]
     Active Substance: LORAZEPAM
  13. VOLTAREN [Concomitant]
     Active Substance: DICLOFENAC SODIUM
  14. PROGESTERONE [Concomitant]
     Active Substance: PROGESTERONE
  15. BI-EST [Concomitant]
  16. TESTOSTERONE [Concomitant]
     Active Substance: TESTOSTERONE
  17. CALCIUM [Concomitant]
     Active Substance: CALCIUM
  18. FISH OIL [Concomitant]
     Active Substance: FISH OIL
  19. ZINC [Concomitant]
     Active Substance: ZINC
  20. CURCUMIN [Concomitant]
     Active Substance: CURCUMIN

REACTIONS (7)
  - Gallbladder disorder [Recovered/Resolved]
  - Gastric ulcer [Recovered/Resolved]
  - Increased appetite [Not Recovered/Not Resolved]
  - Weight increased [Unknown]
  - Influenza [Recovered/Resolved]
  - Weight decreased [Unknown]
  - Hepatic steatosis [Unknown]

NARRATIVE: CASE EVENT DATE: 20211201
